FAERS Safety Report 5279908-3 (Version None)
Quarter: 2007Q1

REPORT INFORMATION
  Report Type: 
  Country: None (occurrence: None)
  Receive Date: 20070329
  Receipt Date: 20070320
  Transmission Date: 20070707
  Serious: Yes (Other)
  Sender: FDA-Public Use
  Company Number: PHEH2007US03360

PATIENT
  Age: 72 Year
  Sex: Female

DRUGS (3)
  1. AREDIA [Suspect]
     Indication: MULTIPLE MYELOMA
     Dosage: UNK, QMO
     Dates: start: 20001201
  2. ZOMETA [Suspect]
     Indication: MULTIPLE MYELOMA
     Dosage: UNK, QMO
  3. CHEMOTHERAPEUTICS NOS [Concomitant]
     Indication: MULTIPLE MYELOMA

REACTIONS (6)
  - BONE DISORDER [None]
  - DENTAL TREATMENT [None]
  - MOUTH ULCERATION [None]
  - OSTEONECROSIS [None]
  - TOOTH DISORDER [None]
  - TOOTHACHE [None]
